FAERS Safety Report 4844692-1 (Version None)
Quarter: 2005Q4

REPORT INFORMATION
  Report Type: 
  Country: None (occurrence: None)
  Receive Date: 20051201
  Receipt Date: 20051201
  Transmission Date: 20060501
  Serious: Yes (Life-Threatening, Hospitalization)
  Sender: FDA-Public Use
  Company Number: None

PATIENT
  Age: 77 Year
  Sex: Male
  Weight: 78 kg

DRUGS (1)
  1. LOVENOX [Suspect]
     Indication: BLOOD CREATINE PHOSPHOKINASE INCREASED
     Dosage: 80MG  Q12H SQ
     Route: 058
     Dates: start: 20050821, end: 20050825

REACTIONS (1)
  - RETROPERITONEAL HAEMORRHAGE [None]
